FAERS Safety Report 8015837 (Version 4)
Quarter: 2013Q1

REPORT INFORMATION
  Report Type: Spontaneous
  Country: US (occurrence: US)
  Receive Date: 20110629
  Receipt Date: 20130131
  Transmission Date: 20140127
  Serious: Yes (Other)
  Sender: FDA-Public Use
  Company Number: US-RB-017136-10

PATIENT
  Age: 29 Year
  Sex: Female

DRUGS (3)
  1. SUBUTEX [Suspect]
     Indication: DRUG DEPENDENCE
     Dosage: 12 MG TAPERING
     Route: 065
     Dates: start: 200711
  2. SUBUTEX [Suspect]
     Dosage: 3 MG
     Route: 065
  3. PRENATAL VITAMIN [Concomitant]
     Indication: PREGNANCY
     Dosage: DOSING DETAILS UNKNOWN
     Route: 065
     Dates: start: 20101022

REACTIONS (4)
  - Exposure during pregnancy [Recovered/Resolved]
  - Premature labour [Recovered/Resolved]
  - Premature delivery [Recovered/Resolved]
  - Anxiety [Recovered/Resolved]
